FAERS Safety Report 11227331 (Version 1)
Quarter: 2015Q2

REPORT INFORMATION
  Report Type: Spontaneous
  Country: DE (occurrence: DE)
  Receive Date: 20150630
  Receipt Date: 20150630
  Transmission Date: 20150821
  Serious: Yes (Life-Threatening, Other)
  Sender: FDA-Public Use
  Company Number: DE-009507513-1506DEU014667

PATIENT
  Age: 38 Year
  Sex: Male

DRUGS (2)
  1. DIACETYLMORPHINE [Suspect]
     Active Substance: DIACETYLMORPHINE
  2. LIDOCAINE. [Suspect]
     Active Substance: LIDOCAINE
     Indication: PRODUCT USED FOR UNKNOWN INDICATION

REACTIONS (3)
  - Toxic leukoencephalopathy [Unknown]
  - Toxicologic test abnormal [Unknown]
  - Drug abuse [Unknown]
